FAERS Safety Report 19303974 (Version 1)
Quarter: 2021Q2

REPORT INFORMATION
  Report Type: Spontaneous
  Country: FR (occurrence: FR)
  Receive Date: 20210525
  Receipt Date: 20210525
  Transmission Date: 20210717
  Serious: Yes (Hospitalization)
  Sender: FDA-Public Use
  Company Number: FR-AMERICAN REGENT INC-2021001291

PATIENT
  Age: 58 Year
  Sex: Female
  Weight: 95 kg

DRUGS (4)
  1. FERINJECT [Suspect]
     Active Substance: FERRIC CARBOXYMALTOSE
     Indication: HYPOFERRITINAEMIA
     Dosage: 1 G
     Route: 042
     Dates: start: 20201124, end: 20201124
  2. FERINJECT [Suspect]
     Active Substance: FERRIC CARBOXYMALTOSE
     Dosage: 1 G
     Route: 042
     Dates: start: 20201208, end: 20201208
  3. FERINJECT [Suspect]
     Active Substance: FERRIC CARBOXYMALTOSE
     Dosage: 1 G
     Route: 042
     Dates: start: 20210107, end: 20210107
  4. FERINJECT [Suspect]
     Active Substance: FERRIC CARBOXYMALTOSE
     Dosage: 1 G
     Route: 042
     Dates: start: 20210121, end: 20210121

REACTIONS (2)
  - Hyperferritinaemia [Recovering/Resolving]
  - Arthralgia [Recovering/Resolving]

NARRATIVE: CASE EVENT DATE: 20210107
